FAERS Safety Report 8621736-2 (Version None)
Quarter: 2012Q3

REPORT INFORMATION
  Report Type: 
  Country: None (occurrence: None)
  Receive Date: 20120821
  Receipt Date: 20120821
  Transmission Date: 20120928
  Serious: Yes (Hospitalization)
  Sender: FDA-Public Use
  Company Number: None

PATIENT
  Sex: Male
  Weight: 66.4 kg

DRUGS (3)
  1. CARBOPLATIN [Suspect]
     Dosage: 425 MG
  2. TAXOL [Suspect]
     Dosage: 366 MG
  3. BEVACIZUMAB [Suspect]
     Dosage: 1000 MG

REACTIONS (3)
  - FEBRILE NEUTROPENIA [None]
  - MIDDLE INSOMNIA [None]
  - PAIN [None]
